FAERS Safety Report 5011040-6 (Version None)
Quarter: 2006Q2

REPORT INFORMATION
  Report Type: 
  Country: None (occurrence: None)
  Receive Date: 20060525
  Receipt Date: 20040116
  Transmission Date: 20061013
  Serious: No
  Sender: FDA-Public Use
  Company Number: US-BRISTOL-MYERS SQUIBB COMPANY-12480133

PATIENT
  Sex: Male

DRUGS (1)
  1. CORGARD [Suspect]
     Route: 048

REACTIONS (2)
  - INSOMNIA [None]
  - WEIGHT DECREASED [None]
